FAERS Safety Report 5387702-8 (Version None)
Quarter: 2007Q3

REPORT INFORMATION
  Report Type: 
  Country: None (occurrence: None)
  Receive Date: 20070712
  Receipt Date: 20070712
  Transmission Date: 20080115
  Serious: Yes (Hospitalization)
  Sender: FDA-Public Use
  Company Number: None

PATIENT
  Sex: Male
  Weight: 79.5 kg

DRUGS (4)
  1. TAXOTERE [Suspect]
     Dosage: 150 MG
  2. ASPIRIN [Suspect]
  3. DARVOCET [Suspect]
  4. IBUPROFEN [Suspect]

REACTIONS (4)
  - GASTRITIS [None]
  - GASTROINTESTINAL HAEMORRHAGE [None]
  - NEUTROPHIL COUNT DECREASED [None]
  - WHITE BLOOD CELL COUNT DECREASED [None]
